FAERS Safety Report 8221063-1 (Version None)
Quarter: 2012Q1

REPORT INFORMATION
  Report Type: 
  Country: None (occurrence: None)
  Receive Date: 20120316
  Receipt Date: 20120305
  Transmission Date: 20120608
  Serious: Yes (Hospitalization)
  Sender: FDA-Public Use
  Company Number: 2012-1148

PATIENT
  Age: 39 Year
  Sex: Female

DRUGS (9)
  1. DULOXETINE HYDROCHLORIDE [Concomitant]
  2. BOTULINUM TOXIN TYPE A [Suspect]
  3. KENALOG [Concomitant]
  4. BACLOFEN [Concomitant]
  5. MARCAINE [Concomitant]
  6. BOTULINUM TOXIN TYPE A [Suspect]
     Indication: OFF LABEL USE
     Dosage: 100 UNITS (100 UNITS, SINGLE CYCLE), INTRAMUSCULAR
     Route: 030
  7. BOTULINUM TOXIN TYPE A [Suspect]
     Indication: PELVIC PAIN
     Dosage: 100 UNITS (100 UNITS, SINGLE CYCLE), INTRAMUSCULAR
     Route: 030
  8. NARCOTICS (ANALGESICS) [Concomitant]
  9. GABAPENTIN [Concomitant]

REACTIONS (9)
  - STAPHYLOCOCCUS TEST POSITIVE [None]
  - STREPTOCOCCUS TEST POSITIVE [None]
  - MUSCLE SPASMS [None]
  - RECTAL ABSCESS [None]
  - HAEMOGLOBIN DECREASED [None]
  - HAEMATOCRIT DECREASED [None]
  - ESCHERICHIA TEST POSITIVE [None]
  - KLEBSIELLA TEST POSITIVE [None]
  - DISEASE RECURRENCE [None]
